FAERS Safety Report 10299720 (Version 2)
Quarter: 2014Q3

REPORT INFORMATION
  Report Type: Spontaneous
  Country: US (occurrence: US)
  Receive Date: 20140711
  Receipt Date: 20140711
  Transmission Date: 20150326
  Serious: No
  Sender: FDA-Public Use
  Company Number: US-GILEAD-2013-0078185

PATIENT
  Age: 61 Year
  Sex: Female

DRUGS (2)
  1. LETAIRIS [Suspect]
     Active Substance: AMBRISENTAN
     Indication: CHRONIC OBSTRUCTIVE PULMONARY DISEASE
  2. LETAIRIS [Suspect]
     Active Substance: AMBRISENTAN
     Indication: PULMONARY ARTERIAL HYPERTENSION
     Dosage: 5 MG, UNK
     Route: 048
     Dates: start: 20120308

REACTIONS (6)
  - Insomnia [Not Recovered/Not Resolved]
  - Unevaluable event [Unknown]
  - Nasal congestion [Not Recovered/Not Resolved]
  - Dyspnoea [Unknown]
  - Treatment noncompliance [None]
  - Walking distance test abnormal [None]

NARRATIVE: CASE EVENT DATE: 20120308
